FAERS Safety Report 11291277 (Version 2)
Quarter: 2015Q3

REPORT INFORMATION
  Report Type: Spontaneous
  Country: GB (occurrence: GB)
  Receive Date: 20150722
  Receipt Date: 20150806
  Transmission Date: 20151125
  Serious: Yes (Death, Other)
  Sender: FDA-Public Use
  Company Number: GB-BIOGENIDEC-2015BI095590

PATIENT
  Age: 38 Year
  Sex: Male

DRUGS (1)
  1. TYSABRI [Suspect]
     Active Substance: NATALIZUMAB
     Indication: MULTIPLE SCLEROSIS
     Route: 042
     Dates: start: 20091104, end: 20150408

REACTIONS (5)
  - Anaemia [Unknown]
  - Adverse drug reaction [Unknown]
  - Metastatic renal cell carcinoma [Unknown]
  - Weight decreased [Unknown]
  - Pneumonia [Fatal]
